FAERS Safety Report 8419909-7 (Version None)
Quarter: 2012Q2

REPORT INFORMATION
  Report Type: 
  Country: None (occurrence: None)
  Receive Date: 20120607
  Receipt Date: 20120523
  Transmission Date: 20120825
  Serious: No
  Sender: FDA-Public Use
  Company Number: US-ASTRAZENECA-2012SE33356

PATIENT
  Sex: Female

DRUGS (2)
  1. NEXIUM [Suspect]
     Indication: ABDOMINAL DISCOMFORT
     Route: 048
  2. NEXIUM [Suspect]
     Indication: CHEST PAIN
     Route: 048

REACTIONS (2)
  - DYSPEPSIA [None]
  - DRUG PRESCRIBING ERROR [None]
